FAERS Safety Report 12109209 (Version 1)
Quarter: 2016Q1

REPORT INFORMATION
  Report Type: Spontaneous
  Country: US (occurrence: None)
  Receive Date: 20160222
  Receipt Date: 20160222
  Transmission Date: 20160526
  Serious: Yes (Hospitalization)
  Sender: FDA-Public Use
  Company Number: None

PATIENT
  Age: 50 Year
  Sex: Male

DRUGS (14)
  1. INSULIN REGULAR [Concomitant]
     Active Substance: INSULIN NOS
  2. VANCOMYCIN [Concomitant]
     Active Substance: VANCOMYCIN
  3. METHYLPREDNISOLONE. [Suspect]
     Active Substance: METHYLPREDNISOLONE
     Indication: INFECTION
     Route: 042
     Dates: start: 20160121
  4. ACETAMINOPHEN. [Concomitant]
     Active Substance: ACETAMINOPHEN
  5. INSULIN ASPART [Concomitant]
     Active Substance: INSULIN ASPART
  6. INSULIN GLARGINE [Concomitant]
     Active Substance: INSULIN GLARGINE
  7. ISONIAZID. [Concomitant]
     Active Substance: ISONIAZID
  8. PYRAZINAMIDE. [Concomitant]
     Active Substance: PYRAZINAMIDE
  9. ETHAMBUTOL [Concomitant]
     Active Substance: ETHAMBUTOL HYDROCHLORIDE
  10. HEPARIN [Concomitant]
     Active Substance: HEPARIN SODIUM
  11. RIFAMPIN. [Concomitant]
     Active Substance: RIFAMPIN
  12. FAMOTIDINE. [Concomitant]
     Active Substance: FAMOTIDINE
  13. AZTREONAM. [Concomitant]
     Active Substance: AZTREONAM
  14. METRONIDAZOLE. [Concomitant]
     Active Substance: METRONIDAZOLE

REACTIONS (3)
  - Hyperglycaemia [None]
  - Weight decreased [None]
  - Increased insulin requirement [None]

NARRATIVE: CASE EVENT DATE: 20160125
